FAERS Safety Report 13623166 (Version 1)
Quarter: 2017Q2

REPORT INFORMATION
  Report Type: Spontaneous
  Country: AT (occurrence: AT)
  Receive Date: 20170607
  Receipt Date: 20170607
  Transmission Date: 20170830
  Serious: Yes (Hospitalization, Other)
  Sender: FDA-Public Use
  Company Number: AT-CELGENEUS-AUT-20170509744

PATIENT
  Age: 76 Year
  Sex: Female

DRUGS (3)
  1. REVLIMID [Suspect]
     Active Substance: LENALIDOMIDE
     Indication: LIGHT CHAIN DISEASE
     Route: 048
     Dates: start: 2016
  2. FORTECORTIN [Concomitant]
     Active Substance: DEXAMETHASONE
     Indication: PRODUCT USED FOR UNKNOWN INDICATION
     Route: 065
     Dates: start: 2016
  3. KYPROLIS [Suspect]
     Active Substance: CARFILZOMIB
     Indication: LIGHT CHAIN DISEASE
     Route: 065
     Dates: start: 201604, end: 201704

REACTIONS (3)
  - Cytopenia [Unknown]
  - Cervicobrachial syndrome [Unknown]
  - Infection [Unknown]

NARRATIVE: CASE EVENT DATE: 2017
